FAERS Safety Report 4924420-1 (Version None)
Quarter: 2006Q1

REPORT INFORMATION
  Report Type: 
  Country: None (occurrence: None)
  Receive Date: 20060227
  Receipt Date: 20060216
  Transmission Date: 20060701
  Serious: Yes (Hospitalization)
  Sender: FDA-Public Use
  Company Number: FR-ROCHE-437062

PATIENT
  Age: 91 Year
  Sex: Female
  Weight: 70 kg

DRUGS (17)
  1. ROCEPHIN [Suspect]
     Indication: DRUG USE FOR UNKNOWN INDICATION
     Route: 042
     Dates: start: 20060112, end: 20060118
  2. BEAGYNE [Suspect]
     Indication: DRUG USE FOR UNKNOWN INDICATION
     Route: 048
     Dates: start: 20060120, end: 20060120
  3. AUGMENTIN '125' [Suspect]
     Indication: DRUG USE FOR UNKNOWN INDICATION
     Route: 048
     Dates: start: 20060118, end: 20060127
  4. AUGMENTIN '125' [Suspect]
     Route: 048
     Dates: start: 20060111, end: 20060111
  5. OMEPRAZOLE [Concomitant]
     Route: 048
  6. ALLOPURINOL [Concomitant]
     Route: 048
  7. TRIATEC [Concomitant]
     Route: 048
  8. DEROXAT [Concomitant]
  9. RISPERDAL [Concomitant]
  10. NOVONORM [Concomitant]
  11. LEVOTHYROX [Concomitant]
  12. HYPERIUM [Concomitant]
     Dates: end: 20060111
  13. GYNO-PEVARYL [Concomitant]
     Route: 067
     Dates: start: 20060112, end: 20060114
  14. DIGOXIN [Concomitant]
  15. LASILIX [Concomitant]
  16. KALEORID [Concomitant]
  17. GENTAMYCIN SULFATE [Concomitant]

REACTIONS (1)
  - CHOLESTASIS [None]
